FAERS Safety Report 23965519 (Version 1)
Quarter: 2024Q2

REPORT INFORMATION
  Report Type: Spontaneous
  Country: GB (occurrence: GB)
  Receive Date: 20240612
  Receipt Date: 20240612
  Transmission Date: 20240715
  Serious: Yes (Other)
  Sender: FDA-Public Use
  Company Number: GB-MHRA-MED-202405311156044930-FZMJD

PATIENT
  Age: 59 Day
  Sex: Female
  Weight: 65 kg

DRUGS (1)
  1. METRONIDAZOLE [Suspect]
     Active Substance: METRONIDAZOLE
     Indication: Product used for unknown indication
     Dosage: UNK
     Route: 065
     Dates: start: 20240522

REACTIONS (3)
  - Headache [Recovering/Resolving]
  - Paraesthesia [Recovering/Resolving]
  - Blepharospasm [Recovered/Resolved]

NARRATIVE: CASE EVENT DATE: 20240522
